FAERS Safety Report 8854171 (Version 1)
Quarter: 2012Q4

REPORT INFORMATION
  Report Type: 
  Country: US (occurrence: US)
  Receive Date: 20121022
  Receipt Date: 20121022
  Transmission Date: 20130627
  Serious: Yes (Hospitalization)
  Sender: FDA-Public Use
  Company Number: US-SANOFI-AVENTIS-2012SA074497

PATIENT
  Sex: Female

DRUGS (5)
  1. LANTUS [Suspect]
     Indication: DIABETES MELLITUS
     Dosage: Dose:20 unit(s)
     Route: 058
  2. LANTUS [Suspect]
     Indication: DIABETES MELLITUS
     Dosage: Dose:24 unit(s)
     Route: 058
     Dates: start: 2012
  3. SOLOSTAR [Suspect]
     Indication: DIABETES MELLITUS
  4. SOLOSTAR [Suspect]
     Indication: DIABETES MELLITUS
  5. LEVEMIR INSULIN [Concomitant]
     Indication: DIABETES MELLITUS
     Route: 065

REACTIONS (5)
  - Diverticulitis [Unknown]
  - Blood glucose increased [Unknown]
  - Weight increased [Not Recovered/Not Resolved]
  - Visual acuity reduced [Unknown]
  - Condition aggravated [Unknown]
